FAERS Safety Report 7245292-9 (Version None)
Quarter: 2011Q1

REPORT INFORMATION
  Report Type: 
  Country: None (occurrence: None)
  Receive Date: 20110126
  Receipt Date: 20110113
  Transmission Date: 20110831
  Serious: Yes (Hospitalization)
  Sender: FDA-Public Use
  Company Number: KR-TYCO HEALTHCARE/MALLINCKRODT-T201100090

PATIENT
  Sex: Male

DRUGS (2)
  1. EXALGO [Suspect]
     Indication: CANCER PAIN
     Dosage: 8 MG, QD
     Route: 048
     Dates: start: 20101214, end: 20110101
  2. LACTULOSE [Concomitant]
     Indication: CONSTIPATION
     Route: 048

REACTIONS (6)
  - CONSTIPATION [None]
  - MEMORY IMPAIRMENT [None]
  - DIARRHOEA [None]
  - SOMNOLENCE [None]
  - DIZZINESS [None]
  - PRURITUS [None]
